FAERS Safety Report 9287311 (Version 2)
Quarter: 2013Q3

REPORT INFORMATION
  Report Type: Spontaneous
  Country: US (occurrence: US)
  Receive Date: 20130513
  Receipt Date: 20130806
  Transmission Date: 20140515
  Serious: No
  Sender: FDA-Public Use
  Company Number: US-009507513-1305USA003253

PATIENT
  Age: 53 Year
  Sex: Male
  Weight: 63.95 kg

DRUGS (5)
  1. VICTRELIS [Suspect]
     Dosage: TAKE 4 CAPSULE BY MOUTH EVERY 8 HOURS WITH MEALS OR LIGHT SNACK
     Route: 048
  2. RIBAPAK [Suspect]
     Dosage: 1000/DAY
     Route: 048
     Dates: end: 20130502
  3. PEGASYS [Suspect]
     Dosage: 180 MICROGRAM, QM
     Route: 058
  4. PLAVIX [Concomitant]
     Route: 048
  5. LISINOPRIL [Concomitant]
     Route: 048

REACTIONS (4)
  - Platelet count abnormal [Unknown]
  - Anaemia [Unknown]
  - Neutropenia [Unknown]
  - Platelet count decreased [Unknown]
